FAERS Safety Report 8154030-7 (Version None)
Quarter: 2012Q1

REPORT INFORMATION
  Report Type: 
  Country: None (occurrence: None)
  Receive Date: 20120221
  Receipt Date: 20120221
  Transmission Date: 20120608
  Serious: Yes (Other)
  Sender: FDA-Public Use
  Company Number: None

PATIENT

DRUGS (1)
  1. KETOROLAC TROMETHAMINE [Suspect]

REACTIONS (2)
  - PRODUCT LABEL ISSUE [None]
  - MEDICATION ERROR [None]
